FAERS Safety Report 5898514-0 (Version None)
Quarter: 2008Q3

REPORT INFORMATION
  Report Type: 
  Country: None (occurrence: None)
  Receive Date: 20080925
  Receipt Date: 20071214
  Transmission Date: 20090109
  Serious: No
  Sender: FDA-Public Use
  Company Number: A0699376A

PATIENT
  Sex: Female

DRUGS (1)
  1. WELLBUTRIN XL [Suspect]
     Dosage: 1TAB PER DAY
     Route: 065

REACTIONS (2)
  - METRORRHAGIA [None]
  - UTERINE DISORDER [None]
